FAERS Safety Report 15699180 (Version 1)
Quarter: 2018Q4

REPORT INFORMATION
  Report Type: Report from Study
  Country: GB (occurrence: GB)
  Receive Date: 20181207
  Receipt Date: 20181207
  Transmission Date: 20190205
  Serious: Yes (Death)
  Sender: FDA-Public Use
  Company Number: GB-B.I. PHARMACEUTICALS,INC./RIDGEFIELD-2018-BI-001795

PATIENT

DRUGS (4)
  1. ASPIRIN. [Concomitant]
     Active Substance: ASPIRIN
     Dosage: TYPICALLY 75 MG,
     Route: 050
  2. ASPIRIN. [Concomitant]
     Active Substance: ASPIRIN
     Indication: PRODUCT USED FOR UNKNOWN INDICATION
     Dosage: 300 MG LOAD THEN 50-150 MG DAILY,
     Route: 065
  3. CLOPIDOGREL [Concomitant]
     Active Substance: CLOPIDOGREL BISULFATE
     Indication: PRODUCT USED FOR UNKNOWN INDICATION
     Dosage: 300 MG LOAD THEN 75 MG DAILY
     Route: 050
  4. PERSANTIN [Suspect]
     Active Substance: DIPYRIDAMOLE
     Indication: CEREBRAL ISCHAEMIA
     Dosage: 200 MG TWICE DAILY GIVEN ORALLY, OR 100 MG THREE OR FOUR TIMES DAILY
     Route: 050

REACTIONS (1)
  - Death [Fatal]
